FAERS Safety Report 19466374 (Version 2)
Quarter: 2021Q2

REPORT INFORMATION
  Report Type: Spontaneous
  Country: US (occurrence: US)
  Receive Date: 20210627
  Receipt Date: 20210629
  Transmission Date: 20210717
  Serious: No
  Sender: FDA-Public Use
  Company Number: US-GLAXOSMITHKLINE-USCH2021040604

PATIENT
  Age: 70 Year
  Sex: Female

DRUGS (2)
  1. PREDNISONE. [Concomitant]
     Active Substance: PREDNISONE
  2. ADVIL [Suspect]
     Active Substance: IBUPROFEN
     Indication: PAIN
     Dosage: UNK (1, U)

REACTIONS (4)
  - Joint swelling [Recovered/Resolved]
  - Dyspnoea [Unknown]
  - Pruritus [Recovered/Resolved]
  - Urticaria [Unknown]
